FAERS Safety Report 15231118 (Version 4)
Quarter: 2018Q3

REPORT INFORMATION
  Report Type: Spontaneous
  Country: US (occurrence: US)
  Receive Date: 20180802
  Receipt Date: 20180921
  Transmission Date: 20181010
  Serious: Yes (Other)
  Sender: FDA-Public Use
  Company Number: US-JNJFOC-20180739358

PATIENT
  Sex: Male
  Weight: 85.73 kg

DRUGS (3)
  1. ZYTIGA [Suspect]
     Active Substance: ABIRATERONE ACETATE
     Indication: PROSTATE CANCER STAGE IV
     Route: 048
     Dates: start: 20180505
  2. XGEVA [Concomitant]
     Active Substance: DENOSUMAB
     Indication: BONE METABOLISM DISORDER
     Route: 058
     Dates: start: 201805
  3. ELIGARD [Suspect]
     Active Substance: LEUPROLIDE ACETATE
     Indication: PROSTATE CANCER STAGE IV
     Dosage: MONTHLY
     Route: 058
     Dates: start: 201703

REACTIONS (2)
  - Aortic valve incompetence [Unknown]
  - Coronary artery stenosis [Unknown]

NARRATIVE: CASE EVENT DATE: 2018
